FAERS Safety Report 12085723 (Version 3)
Quarter: 2016Q3

REPORT INFORMATION
  Report Type: Spontaneous
  Country: US (occurrence: US)
  Receive Date: 20160217
  Receipt Date: 20160830
  Transmission Date: 20161109
  Serious: Yes (Other)
  Sender: FDA-Public Use
  Company Number: US-TEVA-634835USA

PATIENT
  Age: 39 Year
  Sex: Female

DRUGS (4)
  1. ZECUITY [Suspect]
     Active Substance: SUMATRIPTAN SUCCINATE
     Dosage: HAS USED 9 PATCHES SO FAR (SUBSEQUENT DATES NOT PROVIDED)
     Route: 062
     Dates: start: 201605, end: 201605
  2. TIZANIDINE. [Concomitant]
     Active Substance: TIZANIDINE
  3. ZECUITY [Suspect]
     Active Substance: SUMATRIPTAN SUCCINATE
     Indication: HEADACHE
     Route: 062
     Dates: start: 20160207, end: 20160207
  4. OXYCODONE [Concomitant]
     Active Substance: OXYCODONE

REACTIONS (18)
  - Application site erythema [Not Recovered/Not Resolved]
  - Application site vesicles [Not Recovered/Not Resolved]
  - Application site urticaria [Not Recovered/Not Resolved]
  - Application site warmth [Not Recovered/Not Resolved]
  - Application site pain [Not Recovered/Not Resolved]
  - Product leakage [Unknown]
  - Application site discolouration [Not Recovered/Not Resolved]
  - Product adhesion issue [Unknown]
  - Wrong technique in product usage process [Unknown]
  - Application site paraesthesia [Recovered/Resolved]
  - Muscle twitching [Recovered/Resolved]
  - Application site pruritus [Not Recovered/Not Resolved]
  - Incorrect drug administration duration [Unknown]
  - Rash macular [Recovered/Resolved]
  - Application site burn [Not Recovered/Not Resolved]
  - Dry skin [Not Recovered/Not Resolved]
  - Application site papules [Not Recovered/Not Resolved]
  - Application site irritation [Not Recovered/Not Resolved]

NARRATIVE: CASE EVENT DATE: 20160207
